FAERS Safety Report 25506703 (Version 1)
Quarter: 2025Q3

REPORT INFORMATION
  Report Type: Spontaneous
  Country: US (occurrence: US)
  Receive Date: 20250702
  Receipt Date: 20250702
  Transmission Date: 20251021
  Serious: Yes (Other)
  Sender: PURDUE
  Company Number: US-PURDUE PHARMA-USA-2005-0022385

PATIENT
  Sex: Male

DRUGS (1)
  1. OXYCONTIN [Suspect]
     Active Substance: OXYCODONE HYDROCHLORIDE
     Indication: Product used for unknown indication
     Route: 048

REACTIONS (8)
  - Drug dependence [Unknown]
  - Paranoia [Unknown]
  - Delusional disorder, unspecified type [Unknown]
  - Obsessive-compulsive disorder [Unknown]
  - Pain [Unknown]
  - Anxiety [Unknown]
  - Depression [Unknown]
  - Drug withdrawal syndrome [Unknown]
